FAERS Safety Report 10028930 (Version 1)
Quarter: 2014Q1

REPORT INFORMATION
  Report Type: Spontaneous
  Country: KH (occurrence: US)
  Receive Date: 20140321
  Receipt Date: 20140321
  Transmission Date: 20141002
  Serious: No
  Sender: FDA-Public Use
  Company Number: US-TEVA-464417USA

PATIENT
  Age: 61 Year
  Sex: Male
  Weight: 30.19 kg

DRUGS (7)
  1. AZILECT [Suspect]
     Indication: PARKINSON^S DISEASE
     Dates: start: 20131127
  2. EFFEXOR [Concomitant]
     Indication: DEPRESSION
  3. SYNTHROID [Concomitant]
     Indication: HYPOTHYROIDISM
  4. CARDIZEM [Concomitant]
     Indication: HYPERTENSION
  5. CARBIDOPA/LEVADOPA [Concomitant]
     Indication: PARKINSON^S DISEASE
  6. STALEVO [Concomitant]
     Indication: PARKINSON^S DISEASE
  7. MIRAPEX [Concomitant]
     Indication: PARKINSON^S DISEASE

REACTIONS (8)
  - Pain [Not Recovered/Not Resolved]
  - Restless legs syndrome [Not Recovered/Not Resolved]
  - Bruxism [Not Recovered/Not Resolved]
  - Tremor [Not Recovered/Not Resolved]
  - Tooth disorder [Not Recovered/Not Resolved]
  - Fatigue [Not Recovered/Not Resolved]
  - Weight increased [Unknown]
  - Stress [Not Recovered/Not Resolved]
